FAERS Safety Report 7029823-X (Version None)
Quarter: 2010Q4

REPORT INFORMATION
  Report Type: 
  Country: None (occurrence: None)
  Receive Date: 20101006
  Receipt Date: 20100929
  Transmission Date: 20110411
  Serious: Yes (Hospitalization)
  Sender: FDA-Public Use
  Company Number: US-BIOGENIDEC-2010BI034127

PATIENT
  Age: 49 Year
  Sex: Male
  Weight: 79 kg

DRUGS (1)
  1. TYSABRI [Suspect]
     Indication: MULTIPLE SCLEROSIS
     Route: 042
     Dates: start: 20080911

REACTIONS (6)
  - ANGER [None]
  - BIPOLAR DISORDER [None]
  - GAIT DISTURBANCE [None]
  - LABORATORY TEST ABNORMAL [None]
  - SLEEP DISORDER [None]
  - WEIGHT DECREASED [None]
